FAERS Safety Report 26199369 (Version 1)
Quarter: 2025Q4

REPORT INFORMATION
  Report Type: Spontaneous
  Country: EU (occurrence: EU)
  Receive Date: 20251225
  Receipt Date: 20251225
  Transmission Date: 20260118
  Serious: Yes (Other)
  Sender: NOVARTIS
  Company Number: None

PATIENT
  Age: 66 Year
  Sex: Female

DRUGS (5)
  1. KISQALI [Suspect]
     Active Substance: RIBOCICLIB SUCCINATE
     Indication: Invasive breast carcinoma
     Dosage: 400MG/DIE
     Route: 048
     Dates: start: 20250722, end: 20251105
  2. LOBIDIUR [Concomitant]
     Active Substance: HYDROCHLOROTHIAZIDE\NEBIVOLOL HYDROCHLORIDE
     Indication: Hypertension
     Dosage: UNK
     Route: 048
     Dates: start: 2025
  3. CHOLECALCIFEROL [Concomitant]
     Active Substance: CHOLECALCIFEROL
     Indication: Blood 1,25-dihydroxycholecalciferol decreased
     Dosage: UNK 25000 UI/SETTIMANA
     Route: 048
     Dates: start: 2025
  4. LASIX [Concomitant]
     Active Substance: FUROSEMIDE
     Indication: Hypertension
     Dosage: UNK 25MG/DIE
     Route: 048
     Dates: start: 2025
  5. ALENDRONATO SODICO [Concomitant]
     Indication: Osteoporosis
     Dosage: UNK 70MG/DIE
     Route: 048
     Dates: start: 202511

REACTIONS (1)
  - Skin discolouration [Recovering/Resolving]

NARRATIVE: CASE EVENT DATE: 20251001
